FAERS Safety Report 10064286 (Version 1)
Quarter: 2013Q4

REPORT INFORMATION
  Report Type: Spontaneous
  Country: US (occurrence: None)
  Receive Date: 20131119
  Receipt Date: 20131119
  Transmission Date: 20140711
  Serious: Yes (Hospitalization)
  Sender: FDA-Public Use
  Company Number: 2013366

PATIENT
  Age: 76 Year
  Sex: Male

DRUGS (2)
  1. AMIODARONE [Suspect]
     Indication: ARRHYTHMIA
  2. DABIGATRAN [Suspect]
     Indication: CEREBROVASCULAR ACCIDENT PROPHYLAXIS

REACTIONS (3)
  - Atrial fibrillation [None]
  - Urogenital haemorrhage [None]
  - Drug interaction [None]
